FAERS Safety Report 19237338 (Version 1)
Quarter: 2021Q2

REPORT INFORMATION
  Report Type: Spontaneous
  Country: US (occurrence: US)
  Receive Date: 20210510
  Receipt Date: 20210510
  Transmission Date: 20210717
  Serious: No
  Sender: FDA-Public Use
  Company Number: None

PATIENT
  Age: 75 Year
  Sex: Male
  Weight: 60 kg

DRUGS (2)
  1. DOXYCYCLINE (DOXYCYCLINE MONOHYDRATE 100MG CAP) [Suspect]
     Active Substance: DOXYCYCLINE
     Route: 048
     Dates: start: 20210131, end: 20210204
  2. AMOXICILLIN (CLAVULANATE ) AMOXICILLIN TRIHYDRATE 875MG/CLAVULANATE K 1 [Suspect]
     Active Substance: AMOXICILLIN\CLAVULANATE POTASSIUM
     Indication: PNEUMONIA
     Dates: start: 20210131, end: 20210204

REACTIONS (3)
  - Urticaria [None]
  - Pruritus [None]
  - Rash [None]

NARRATIVE: CASE EVENT DATE: 20210301
